FAERS Safety Report 8200361 (Version 6)
Quarter: 2012Q4

REPORT INFORMATION
  Report Type: Report from Study
  Country: BE (occurrence: BE)
  Receive Date: 20111026
  Receipt Date: 20121212
  Transmission Date: 20130627
  Serious: Yes (Hospitalization)
  Sender: FDA-Public Use
  Company Number: BE-ROCHE-1006417

PATIENT
  Age: 64 Year
  Sex: Female
  Weight: 61.3 kg

DRUGS (15)
  1. MYCOPHENOLATE MOFETIL [Suspect]
     Indication: VASCULITIS
     Route: 065
     Dates: start: 20110615, end: 20111025
  2. AZA [Concomitant]
     Route: 065
     Dates: start: 20111025, end: 20120323
  3. PANTOMED (BELGIUM) [Concomitant]
     Route: 065
  4. METFORMIN [Concomitant]
     Route: 065
  5. EMCONCOR [Concomitant]
     Route: 065
  6. MOTILIUM (BELGIUM) [Concomitant]
     Route: 065
  7. PRAREDUCT [Concomitant]
     Route: 065
  8. PREDNISOLONE [Concomitant]
     Route: 065
     Dates: start: 20111015
  9. EUSAPRIM [Concomitant]
     Dosage: 400/80 mg
     Route: 065
  10. NOVALDEX [Concomitant]
     Route: 065
  11. SOTALEX [Concomitant]
     Dosage: 2x 0.25 w/ol
     Route: 065
  12. SOTALEX [Concomitant]
     Route: 065
  13. ASAFLOW [Concomitant]
     Route: 065
  14. STEOVIT D3 [Concomitant]
     Dosage: 1000/800 mg
     Route: 065
  15. PRAVASTATIN [Concomitant]
     Dosage: bloe pravastatine
     Route: 065

REACTIONS (7)
  - Oesophageal candidiasis [Recovering/Resolving]
  - Granulomatosis with polyangiitis [Recovering/Resolving]
  - Vomiting [Recovered/Resolved]
  - Granulomatosis with polyangiitis [Not Recovered/Not Resolved]
  - Hydrocephalus [Recovered/Resolved]
  - Congenital syphilitic osteochondritis [Recovered/Resolved]
  - Urinary tract infection enterococcal [Recovered/Resolved]
